FAERS Safety Report 8834069 (Version 1)
Quarter: 2012Q4

REPORT INFORMATION
  Report Type: 
  Country: US (occurrence: US)
  Receive Date: 20121010
  Receipt Date: 20121010
  Transmission Date: 20130627
  Serious: Yes (Other)
  Sender: FDA-Public Use
  Company Number: CHPA2012US020963

PATIENT
  Age: 75 Year
  Sex: Female

DRUGS (6)
  1. MAALOX [Suspect]
     Indication: FLATULENCE
     Dosage: UNK, Daily
     Route: 048
  2. MAALOX ADV MAXIMUM STRENGTH ANTACID/ANTIGAS CHEWABLE [Suspect]
     Indication: FLATULENCE
     Dosage: UNK, Daily
  3. GAS-X [Concomitant]
     Indication: FLATULENCE
  4. PROBIOTICS [Concomitant]
  5. ZYRTEC [Concomitant]
  6. IMODIUM ADVANCED [Concomitant]

REACTIONS (13)
  - Colitis [Not Recovered/Not Resolved]
  - Pleurisy [Unknown]
  - Abdominal pain upper [Not Recovered/Not Resolved]
  - Dry eye [Unknown]
  - Feeling abnormal [Unknown]
  - Gastrooesophageal reflux disease [Not Recovered/Not Resolved]
  - Dyspepsia [Not Recovered/Not Resolved]
  - Dysphonia [Not Recovered/Not Resolved]
  - Gastrointestinal disorder [Unknown]
  - Insomnia [Unknown]
  - Abdominal pain [Not Recovered/Not Resolved]
  - Incorrect drug administration duration [Unknown]
  - Drug administration error [Unknown]
